FAERS Safety Report 13528946 (Version 1)
Quarter: 2017Q2

REPORT INFORMATION
  Report Type: Report from Study
  Country: US (occurrence: US)
  Receive Date: 20170509
  Receipt Date: 20170509
  Transmission Date: 20170830
  Serious: Yes (Other)
  Sender: FDA-Public Use
  Company Number: US-ALEXION PHARMACEUTICALS INC.-A201704793

PATIENT
  Sex: Female

DRUGS (1)
  1. SOLIRIS [Suspect]
     Active Substance: ECULIZUMAB
     Indication: HAEMOLYTIC URAEMIC SYNDROME
     Route: 042

REACTIONS (11)
  - Haptoglobin abnormal [Unknown]
  - Haemoglobin abnormal [Unknown]
  - Vomiting [Recovered/Resolved]
  - Pancytopenia [Unknown]
  - Platelet count abnormal [Unknown]
  - Haemolytic anaemia [Unknown]
  - Blood urea increased [Unknown]
  - Injury [Unknown]
  - Enteritis [Unknown]
  - Blood lactate dehydrogenase abnormal [Unknown]
  - Thrombocytopenia [Unknown]

NARRATIVE: CASE EVENT DATE: 20170307
